FAERS Safety Report 9743174 (Version 1)
Quarter: 2013Q4

REPORT INFORMATION
  Report Type: Spontaneous
  Country: US (occurrence: US)
  Receive Date: 20131210
  Receipt Date: 20131210
  Transmission Date: 20140711
  Serious: No
  Sender: FDA-Public Use
  Company Number: US-GILEAD-2009-0024898

PATIENT
  Sex: Male
  Weight: 99.79 kg

DRUGS (31)
  1. LETAIRIS [Suspect]
     Indication: PULMONARY ARTERIAL HYPERTENSION
     Route: 048
  2. LETAIRIS [Suspect]
     Route: 048
     Dates: start: 20080122
  3. PRAVASTATIN [Concomitant]
  4. SPIRONOLACTONE [Concomitant]
  5. DIGOXIN [Concomitant]
  6. METOPROLOL [Concomitant]
  7. CAPTOPRIL [Concomitant]
  8. LASIX [Concomitant]
  9. NIFEDIPINE [Concomitant]
  10. ZETIA [Concomitant]
  11. ASPIRIN [Concomitant]
  12. METOLAZONE [Concomitant]
  13. PHENAZOPYRADINE [Concomitant]
  14. FLOMAX [Concomitant]
  15. LOTRIMIN [Concomitant]
  16. NOVOLOG [Concomitant]
  17. PRIMIDONE [Concomitant]
  18. TRIMETHOPRIM [Concomitant]
  19. DIAZEPAM [Concomitant]
  20. AVODART [Concomitant]
  21. LEXAPRO [Concomitant]
  22. GLUMETZA ER [Concomitant]
  23. TESTIM [Concomitant]
  24. CYMBALTA [Concomitant]
  25. AVANDARYL [Concomitant]
  26. ANTIVERT [Concomitant]
  27. NEURONTIN [Concomitant]
  28. GEMFIBROZIL [Concomitant]
  29. TERAZOSIN [Concomitant]
  30. VALIUM [Concomitant]
  31. POTASSIUM CHLORIDE [Concomitant]

REACTIONS (1)
  - Headache [Unknown]
